FAERS Safety Report 15917147 (Version 2)
Quarter: 2019Q1

REPORT INFORMATION
  Report Type: Report from Study
  Country: IT (occurrence: IT)
  Receive Date: 20190205
  Receipt Date: 20190209
  Transmission Date: 20190417
  Serious: Yes (Hospitalization)
  Sender: FDA-Public Use
  Company Number: IT-ACCORD-105519

PATIENT
  Age: 49 Year
  Sex: Male

DRUGS (3)
  1. PAROXETINE. [Suspect]
     Active Substance: PAROXETINE
     Dosage: STRENGTH : 20 MG
     Route: 048
     Dates: start: 20161024, end: 20161024
  2. MINIAS [Suspect]
     Active Substance: LORMETAZEPAM
     Dosage: STRENGTH : 2.5 MG / ML,  ORAL DROPS, SOLUTION
     Route: 048
     Dates: start: 20161024, end: 20161024
  3. ESCITALOPRAM [Suspect]
     Active Substance: ESCITALOPRAM OXALATE
     Route: 048
     Dates: start: 20161024, end: 20161024

REACTIONS (2)
  - Intentional self-injury [Unknown]
  - Sopor [Recovered/Resolved]

NARRATIVE: CASE EVENT DATE: 20161024
